FAERS Safety Report 25353114 (Version 1)
Quarter: 2025Q2

REPORT INFORMATION
  Report Type: Spontaneous
  Country: US (occurrence: US)
  Receive Date: 20250523
  Receipt Date: 20250523
  Transmission Date: 20250717
  Serious: No
  Sender: PFIZER
  Company Number: US-PFIZER INC-PV202500060454

PATIENT
  Sex: Female

DRUGS (1)
  1. DOCETAXEL [Suspect]
     Active Substance: DOCETAXEL
     Dates: start: 202005, end: 202008

REACTIONS (4)
  - Dry eye [Unknown]
  - Keratitis [Unknown]
  - Lacrimal structure injury [Not Recovered/Not Resolved]
  - Lacrimation increased [Unknown]
